FAERS Safety Report 15786330 (Version 1)
Quarter: 2019Q1

REPORT INFORMATION
  Report Type: Spontaneous
  Country: IL (occurrence: IL)
  Receive Date: 20190103
  Receipt Date: 20190103
  Transmission Date: 20190417
  Serious: Yes (Other)
  Sender: FDA-Public Use
  Company Number: IL-ALEMBIC PHARMACUETICALS LIMITED-2018SCAL000977

PATIENT

DRUGS (2)
  1. BUPROPION HYDROCHLORIDE. [Suspect]
     Active Substance: BUPROPION HYDROCHLORIDE
     Indication: BULIMIA NERVOSA
     Dosage: 3,000-4,500 MG/DAY
  2. BUPROPION HYDROCHLORIDE. [Suspect]
     Active Substance: BUPROPION HYDROCHLORIDE
     Indication: POST-TRAUMATIC STRESS DISORDER

REACTIONS (8)
  - Anxiety [Unknown]
  - Intentional overdose [Unknown]
  - Tachycardia [Unknown]
  - Insomnia [Unknown]
  - Drug abuse [Unknown]
  - Generalised tonic-clonic seizure [Unknown]
  - Headache [Unknown]
  - Dependence [Unknown]
